FAERS Safety Report 7769584-X (Version None)
Quarter: 2011Q3

REPORT INFORMATION
  Report Type: 
  Country: None (occurrence: None)
  Receive Date: 20110922
  Receipt Date: 20110413
  Transmission Date: 20111222
  Serious: No
  Sender: FDA-Public Use
  Company Number: US-ASTRAZENECA-2009SE33186

PATIENT
  Age: 14297 Day
  Sex: Male
  Weight: 124.7 kg

DRUGS (15)
  1. TRAZODONE HYDROCHLORIDE [Concomitant]
     Dates: start: 20040507
  2. FUROSEMIDE [Concomitant]
     Dates: start: 20040609
  3. BUPROPION HCL [Concomitant]
     Dates: start: 20040531
  4. MORPHINE SULFATE [Concomitant]
     Dates: start: 20040507
  5. METOPROLOL TARTRATE [Concomitant]
     Dates: start: 20040519
  6. SEROQUEL [Suspect]
     Dosage: 200 - 300 MG
     Route: 048
     Dates: start: 20040506
  7. ZOLOFT [Concomitant]
     Dates: start: 20040705
  8. SEROQUEL [Suspect]
     Indication: POST-TRAUMATIC STRESS DISORDER
     Route: 048
     Dates: start: 19990101
  9. SEROQUEL [Suspect]
     Indication: DEPRESSION
     Route: 048
     Dates: start: 19990101
  10. SEROQUEL [Suspect]
     Route: 048
     Dates: start: 20010101, end: 20090101
  11. SEROQUEL [Suspect]
     Dosage: 200 - 300 MG
     Route: 048
     Dates: start: 20040506
  12. ZONEGRAN [Concomitant]
     Dates: start: 20040511
  13. OXYBUTIN [Concomitant]
     Dates: start: 20040630
  14. SEROQUEL [Suspect]
     Route: 048
     Dates: start: 20010101, end: 20090101
  15. NAPROXEN [Concomitant]
     Dates: start: 20040622

REACTIONS (6)
  - TYPE 2 DIABETES MELLITUS [None]
  - BLOOD CHOLESTEROL INCREASED [None]
  - BLOOD GLUCOSE INCREASED [None]
  - OBESITY [None]
  - HYPERLIPIDAEMIA [None]
  - BLOOD TRIGLYCERIDES INCREASED [None]
